FAERS Safety Report 20028642 (Version 1)
Quarter: 2021Q4

REPORT INFORMATION
  Report Type: Spontaneous
  Country: US (occurrence: US)
  Receive Date: 20211103
  Receipt Date: 20211103
  Transmission Date: 20220303
  Serious: No
  Sender: FDA-Public Use
  Company Number: US-SA-SAC20211028000107

PATIENT
  Sex: Female

DRUGS (12)
  1. AUBAGIO [Suspect]
     Active Substance: TERIFLUNOMIDE
     Indication: Multiple sclerosis
     Dosage: 14MG,QD
     Route: 048
     Dates: start: 20160601
  2. AUBAGIO [Suspect]
     Active Substance: TERIFLUNOMIDE
     Dosage: UNK
     Dates: start: 202110
  3. LASIX [Concomitant]
     Active Substance: FUROSEMIDE
  4. BACLOFEN [Concomitant]
     Active Substance: BACLOFEN
  5. BUPROPION [Concomitant]
     Active Substance: BUPROPION
  6. DICLOFENAC [Concomitant]
     Active Substance: DICLOFENAC
  7. LYRICA [Concomitant]
     Active Substance: PREGABALIN
  8. OMEPRAZOLE [Concomitant]
     Active Substance: OMEPRAZOLE
  9. SUMATRIPTAN [Concomitant]
     Active Substance: SUMATRIPTAN
  10. TRAZODONE [Concomitant]
     Active Substance: TRAZODONE HYDROCHLORIDE
  11. TYLENOL [Concomitant]
     Active Substance: ACETAMINOPHEN
  12. POTASSIUM CHLORIDE [Concomitant]
     Active Substance: POTASSIUM CHLORIDE

REACTIONS (1)
  - Skin wound [Unknown]
